FAERS Safety Report 10515112 (Version 1)
Quarter: 2014Q4

REPORT INFORMATION
  Report Type: Spontaneous
  Country: US (occurrence: US)
  Receive Date: 20141014
  Receipt Date: 20141014
  Transmission Date: 20150528
  Serious: Yes (Other)
  Sender: FDA-Public Use
  Company Number: US-CIPLA LTD.-2014US01513

PATIENT

DRUGS (2)
  1. IRINOTECAN [Suspect]
     Active Substance: IRINOTECAN
     Indication: NEOPLASM
     Dosage: 20 MG/M2/DAY ON DAYS 1 TO 12 OF EACH COURSE
  2. GEFITINIB [Suspect]
     Active Substance: GEFITINIB
     Indication: NEOPLASM
     Dosage: 150 MG/M2 ON DAYS 1TO 12 OF EACH COURSE

REACTIONS (1)
  - Hypokalaemia [Unknown]
